FAERS Safety Report 14760026 (Version 18)
Quarter: 2019Q2

REPORT INFORMATION
  Report Type: Report from Study
  Country: US (occurrence: US)
  Receive Date: 20180413
  Receipt Date: 20190424
  Transmission Date: 20190711
  Serious: Yes (Hospitalization)
  Sender: FDA-Public Use
  Company Number: US-ACTELION-A-US2018-170591

PATIENT
  Age: 18 Year
  Sex: Male
  Weight: 59.86 kg

DRUGS (13)
  1. OXACILLIN [Suspect]
     Active Substance: OXACILLIN SODIUM
     Dosage: UNK, X 6 WEEKS
     Route: 042
  2. REMODULIN [Suspect]
     Active Substance: TREPROSTINIL
     Indication: PRODUCT USED FOR UNKNOWN INDICATION
     Route: 065
  3. VELETRI [Suspect]
     Active Substance: EPOPROSTENOL
     Dosage: 33 NG/KG, PER MIN
     Route: 042
  4. VELETRI [Suspect]
     Active Substance: EPOPROSTENOL
     Dosage: 40 NG/KG, PER MIN
     Route: 042
  5. REVATIO [Concomitant]
     Active Substance: SILDENAFIL CITRATE
     Dosage: 40 G, TID
  6. DIGOXIN. [Concomitant]
     Active Substance: DIGOXIN
     Dosage: 125 MG, QD
  7. LAMOTRIGINE. [Concomitant]
     Active Substance: LAMOTRIGINE
     Indication: SEIZURE
     Dosage: UNK, BID
  8. TRACLEER [Suspect]
     Active Substance: BOSENTAN
     Dosage: 62.5 MG, BID
     Route: 048
     Dates: start: 2019, end: 20190408
  9. VELETRI [Suspect]
     Active Substance: EPOPROSTENOL
     Indication: PULMONARY ARTERIAL HYPERTENSION
     Dosage: 40 NG/KG, PER MIN
     Route: 042
  10. DAPTOMYCIN. [Suspect]
     Active Substance: DAPTOMYCIN
     Indication: VASCULAR DEVICE INFECTION
     Dosage: UNK
     Route: 042
  11. TRACLEER [Suspect]
     Active Substance: BOSENTAN
     Indication: PULMONARY ARTERIAL HYPERTENSION
     Dosage: 125 MG, BID
     Route: 048
     Dates: start: 20141203
  12. LETAIRIS [Concomitant]
     Active Substance: AMBRISENTAN
  13. OXACILLIN [Suspect]
     Active Substance: OXACILLIN SODIUM
     Indication: VASCULAR DEVICE INFECTION
     Dosage: UNK X 4 WEEKS
     Route: 065

REACTIONS (25)
  - Vascular device infection [Unknown]
  - Catheter removal [Unknown]
  - Catheter site cellulitis [Unknown]
  - Staphylococcus test positive [Unknown]
  - White blood cell count decreased [Unknown]
  - Staphylococcal bacteraemia [Unknown]
  - Blood culture negative [Unknown]
  - Haemoglobin decreased [Unknown]
  - Device dislocation [Recovered/Resolved]
  - Skin infection [Unknown]
  - Catheter placement [Unknown]
  - Liver function test increased [Unknown]
  - Neutrophil count decreased [Unknown]
  - Haematocrit decreased [Unknown]
  - Infection [Unknown]
  - Platelet count decreased [Unknown]
  - Alanine aminotransferase increased [Unknown]
  - Device leakage [Unknown]
  - Injection site pain [Recovered/Resolved]
  - Sepsis [Unknown]
  - Soft tissue infection [Unknown]
  - Therapy change [Unknown]
  - Complication associated with device [Unknown]
  - Catheter management [Recovered/Resolved]
  - Deep vein thrombosis [Unknown]

NARRATIVE: CASE EVENT DATE: 20180305
